FAERS Safety Report 7531685-9 (Version None)
Quarter: 2011Q2

REPORT INFORMATION
  Report Type: 
  Country: None (occurrence: None)
  Receive Date: 20110601
  Receipt Date: 20110519
  Transmission Date: 20111010
  Serious: Yes (Other)
  Sender: FDA-Public Use
  Company Number: 1000021207

PATIENT
  Age: 63 Year
  Sex: Female

DRUGS (2)
  1. ESCITALOPRAM [Suspect]
  2. FLUOXETINE [Suspect]

REACTIONS (1)
  - PSORIATIC ARTHROPATHY [None]
